FAERS Safety Report 9793434 (Version 1)
Quarter: 2014Q1

REPORT INFORMATION
  Report Type: Spontaneous
  Country: US (occurrence: US)
  Receive Date: 20140102
  Receipt Date: 20140102
  Transmission Date: 20141002
  Serious: Yes (Other)
  Sender: FDA-Public Use
  Company Number: CHPA2013US018933

PATIENT
  Sex: Male

DRUGS (1)
  1. EXCEDRIN UNKNOWN [Suspect]
     Route: 048

REACTIONS (3)
  - Suicide attempt [Unknown]
  - Depressed mood [Unknown]
  - Intentional overdose [Unknown]
